FAERS Safety Report 6735590-7 (Version None)
Quarter: 2010Q2

REPORT INFORMATION
  Report Type: 
  Country: None (occurrence: None)
  Receive Date: 20100521
  Receipt Date: 20100517
  Transmission Date: 20101027
  Serious: Yes (Hospitalization)
  Sender: FDA-Public Use
  Company Number: JP-BAYER-200912412BYL

PATIENT
  Age: 85 Year
  Sex: Female
  Weight: 48 kg

DRUGS (5)
  1. NEXAVAR [Suspect]
     Indication: HEPATIC NEOPLASM MALIGNANT
     Dosage: TOTAL DAILY DOSE: 800 MG  UNIT DOSE: 200 MG
     Route: 048
     Dates: start: 20090625, end: 20090709
  2. NEXAVAR [Suspect]
     Dosage: UNIT DOSE: 200 MG
     Route: 048
     Dates: start: 20090709, end: 20091015
  3. UREPEARL [Concomitant]
     Indication: PROPHYLAXIS
     Route: 061
     Dates: start: 20090625
  4. PRIMPERAN TAB [Concomitant]
     Indication: PROPHYLAXIS
     Route: 048
     Dates: start: 20090625
  5. PYDOXAL [Concomitant]
     Indication: PROPHYLAXIS
     Route: 048
     Dates: start: 20090625

REACTIONS (6)
  - DECREASED APPETITE [None]
  - DIARRHOEA [None]
  - FATIGUE [None]
  - HEPATIC FUNCTION ABNORMAL [None]
  - MALAISE [None]
  - PALMAR-PLANTAR ERYTHRODYSAESTHESIA SYNDROME [None]
